FAERS Safety Report 22286039 (Version 2)
Quarter: 2023Q2

REPORT INFORMATION
  Report Type: Spontaneous
  Country: US (occurrence: US)
  Receive Date: 20230505
  Receipt Date: 20230623
  Transmission Date: 20230722
  Serious: No
  Sender: FDA-Public Use
  Company Number: US-GSK-US2023AMR061380

PATIENT
  Sex: Male

DRUGS (3)
  1. FLUTICASONE PROPIONATE [Suspect]
     Active Substance: FLUTICASONE PROPIONATE
     Indication: Product used for unknown indication
     Dosage: 1 PUFF(S) 44 MCG, 10.6G/120
  2. FLOVENT HFA [Suspect]
     Active Substance: FLUTICASONE PROPIONATE
     Indication: Product used for unknown indication
     Dosage: 1 PUFF(S), QD
  3. FLOVENT HFA [Suspect]
     Active Substance: FLUTICASONE PROPIONATE

REACTIONS (6)
  - Sinus pain [Unknown]
  - Condition aggravated [Unknown]
  - Acute sinusitis [Unknown]
  - Incorrect dose administered [Unknown]
  - Product taste abnormal [Unknown]
  - Product complaint [Unknown]
